FAERS Safety Report 6444843-1 (Version None)
Quarter: 2009Q4

REPORT INFORMATION
  Report Type: 
  Country: None (occurrence: None)
  Receive Date: 20091116
  Receipt Date: 20091116
  Transmission Date: 20100525
  Serious: Yes (Other)
  Sender: FDA-Public Use
  Company Number: None

PATIENT
  Age: 76 Year
  Sex: Female
  Weight: 60.3284 kg

DRUGS (1)
  1. LISINOPRIL [Suspect]
     Indication: DYSPNOEA
     Dosage: 100 MG 2 TIME A DAY
     Dates: start: 20080501, end: 20090201

REACTIONS (2)
  - CONDITION AGGRAVATED [None]
  - DYSPNOEA [None]
